FAERS Safety Report 17535827 (Version 1)
Quarter: 2020Q1

REPORT INFORMATION
  Report Type: Report from Study
  Country: US (occurrence: US)
  Receive Date: 20200313
  Receipt Date: 20200313
  Transmission Date: 20200409
  Serious: No
  Sender: FDA-Public Use
  Company Number: US-IPSEN BIOPHARMACEUTICALS, INC.-2020-04622

PATIENT
  Age: 4 Year
  Sex: Male
  Weight: 16.5 kg

DRUGS (4)
  1. DYSPORT [Suspect]
     Active Substance: ABOBOTULINUMTOXINA
     Indication: MUSCLE SPASTICITY
     Dosage: 500 UNITS
     Route: 030
     Dates: start: 20200117, end: 20200117
  2. BACLOFEN. [Concomitant]
     Active Substance: BACLOFEN
     Dates: start: 20160108
  3. MIRALAX [Concomitant]
     Active Substance: POLYETHYLENE GLYCOL 3350
     Indication: CONSTIPATION
     Dosage: PRN - AS NEEDED
     Dates: start: 20170327
  4. FLONASE [Concomitant]
     Active Substance: FLUTICASONE PROPIONATE
     Indication: SINUSITIS
     Route: 045
     Dates: start: 20181008

REACTIONS (1)
  - Decubitus ulcer [Unknown]

NARRATIVE: CASE EVENT DATE: 20200204
